FAERS Safety Report 7349471-1 (Version None)
Quarter: 2011Q1

REPORT INFORMATION
  Report Type: 
  Country: None (occurrence: None)
  Receive Date: 20110314
  Receipt Date: 20110208
  Transmission Date: 20110831
  Serious: No
  Sender: FDA-Public Use
  Company Number: US-ABBOTT-11P-163-0703660-00

PATIENT
  Sex: Male
  Weight: 97.61 kg

DRUGS (6)
  1. INSULIN [Concomitant]
     Indication: DIABETES MELLITUS
  2. DEPAKOTE [Suspect]
     Indication: BIPOLAR DISORDER
     Dates: start: 20110101
  3. DEPAKOTE [Suspect]
     Dates: end: 20110101
  4. LACTULOSE [Suspect]
     Indication: AMMONIA INCREASED
     Dosage: 10G/15ML
     Dates: start: 20110101
  5. ABILIFY [Concomitant]
     Indication: BIPOLAR DISORDER
  6. ZETIA [Concomitant]
     Indication: PRODUCT USED FOR UNKNOWN INDICATION

REACTIONS (2)
  - AMMONIA INCREASED [None]
  - DIARRHOEA [None]
